FAERS Safety Report 5009842-5 (Version None)
Quarter: 2006Q2

REPORT INFORMATION
  Report Type: 
  Country: None (occurrence: None)
  Receive Date: 20060522
  Receipt Date: 20060508
  Transmission Date: 20061013
  Serious: Yes (Hospitalization)
  Sender: FDA-Public Use
  Company Number: L06-FRA-01781-01

PATIENT
  Age: 55 Year
  Sex: Female

DRUGS (1)
  1. DILTIAZEM [Suspect]
     Dosage: 8400 MG ONCE PO
     Route: 048

REACTIONS (9)
  - ATRIOVENTRICULAR BLOCK FIRST DEGREE [None]
  - GENERAL PHYSICAL HEALTH DETERIORATION [None]
  - HYPOTENSION [None]
  - INTENTIONAL OVERDOSE [None]
  - METABOLIC ACIDOSIS [None]
  - RENAL FAILURE ACUTE [None]
  - SHOCK [None]
  - SINUS BRADYCARDIA [None]
  - VENTRICULAR DYSFUNCTION [None]
